FAERS Safety Report 23199941 (Version 1)
Quarter: 2023Q4

REPORT INFORMATION
  Report Type: Spontaneous
  Country: US (occurrence: US)
  Receive Date: 20231117
  Receipt Date: 20231117
  Transmission Date: 20240109
  Serious: Yes (Hospitalization, Other)
  Sender: FDA-Public Use
  Company Number: US-GILEAD-2023-0651584

PATIENT
  Age: 20 Year
  Sex: Female

DRUGS (1)
  1. YESCARTA [Suspect]
     Active Substance: AXICABTAGENE CILOLEUCEL
     Indication: Diffuse large B-cell lymphoma
     Dosage: 68 ML; MAXIMUM OF 2 X 10^8 AUTOLOGOUS ANTI-CD19 CAR-T CELLS
     Route: 042
     Dates: start: 20230925, end: 20230925

REACTIONS (2)
  - Cytokine release syndrome [Recovered/Resolved]
  - Neutropenia [Recovered/Resolved]

NARRATIVE: CASE EVENT DATE: 20230928
